FAERS Safety Report 9597007 (Version 6)
Quarter: 2014Q2

REPORT INFORMATION
  Report Type: Spontaneous
  Country: US (occurrence: US)
  Receive Date: 20131004
  Receipt Date: 20140410
  Transmission Date: 20141212
  Serious: Yes (Hospitalization, Other)
  Sender: FDA-Public Use
  Company Number: US-009507513-1203USA01172

PATIENT
  Sex: Female

DRUGS (4)
  1. FOSAMAX [Suspect]
     Indication: OSTEOPENIA
     Dosage: UNK
     Route: 048
     Dates: start: 1995, end: 2008
  2. ACTONEL [Suspect]
     Indication: OSTEOPENIA
     Dosage: UNK
     Dates: start: 1995, end: 2008
  3. BONIVA [Suspect]
     Indication: OSTEOPENIA
     Dosage: UNK
     Dates: start: 1995, end: 2008
  4. ESTROGENS (UNSPECIFIED) [Concomitant]
     Indication: ARTIFICIAL MENOPAUSE
     Dosage: UNK
     Dates: start: 1980

REACTIONS (31)
  - Femur fracture [Recovered/Resolved]
  - Intramedullary rod insertion [Unknown]
  - Wound drainage [Recovered/Resolved]
  - Fat necrosis [Unknown]
  - Debridement [Unknown]
  - Fracture nonunion [Recovered/Resolved]
  - Incisional drainage [Unknown]
  - Medical device removal [Unknown]
  - Osteomyelitis salmonella [Recovered/Resolved]
  - Femur fracture [Recovered/Resolved]
  - Intramedullary rod insertion [Unknown]
  - Cholecystectomy [Unknown]
  - Osteoarthritis [Unknown]
  - Hypokalaemia [Recovered/Resolved]
  - Post procedural haemorrhage [Unknown]
  - Fall [Unknown]
  - Pyrexia [Unknown]
  - Fall [Unknown]
  - Post procedural infection [Recovered/Resolved]
  - Depression [Unknown]
  - Anxiety [Unknown]
  - Palpitations [Unknown]
  - Hypertension [Unknown]
  - Nervousness [Unknown]
  - Insomnia [Unknown]
  - Appendicectomy [Unknown]
  - Fracture delayed union [Unknown]
  - Rotator cuff syndrome [Unknown]
  - Spinal pain [Unknown]
  - Pain in extremity [Unknown]
  - Drug ineffective [Unknown]
